FAERS Safety Report 10304826 (Version 3)
Quarter: 2014Q3

REPORT INFORMATION
  Report Type: Report from Study
  Country: CA (occurrence: CA)
  Receive Date: 20140715
  Receipt Date: 20140728
  Transmission Date: 20150326
  Serious: Yes (Hospitalization)
  Sender: FDA-Public Use
  Company Number: PHHY2011CA88590

PATIENT
  Age: 74 Year
  Sex: Female

DRUGS (4)
  1. LUTETIUM (LU 177) [Concomitant]
     Active Substance: LUTETIUM LU-177
     Dosage: UNK UKN, UNK
  2. SANDOSTATIN LAR DEPOT [Suspect]
     Active Substance: OCTREOTIDE ACETATE
     Indication: CARCINOID SYNDROME
     Dosage: 30 MG, QMO
     Route: 030
     Dates: start: 20100429
  3. SANDOSTATIN LAR DEPOT [Suspect]
     Active Substance: OCTREOTIDE ACETATE
     Dosage: 40 MG, EVERY FOUR WEEKS
     Route: 030
  4. AFINITOR [Suspect]
     Active Substance: EVEROLIMUS
     Indication: CARCINOID SYNDROME
     Dosage: 10 MG, DAILY
     Route: 048
     Dates: start: 20111214, end: 20130109

REACTIONS (5)
  - Asthenia [Recovering/Resolving]
  - Feeling abnormal [Recovering/Resolving]
  - Drug ineffective [Unknown]
  - Intestinal obstruction [Recovering/Resolving]
  - Diarrhoea [Unknown]

NARRATIVE: CASE EVENT DATE: 201407
